FAERS Safety Report 9960395 (Version 1)
Quarter: 2014Q1

REPORT INFORMATION
  Report Type: Report from Study
  Country: US (occurrence: US)
  Receive Date: 20140305
  Receipt Date: 20140305
  Transmission Date: 20141002
  Serious: No
  Sender: FDA-Public Use
  Company Number: US-ABBVIE-13P-163-1110378-00

PATIENT
  Sex: Male

DRUGS (9)
  1. HUMIRA [Suspect]
     Indication: PSORIASIS
     Dates: start: 2012
  2. EXFORGE [Concomitant]
     Indication: BLOOD PRESSURE
     Dosage: 10/320 MG ONCE A DAY
  3. ATENOLOL [Concomitant]
     Dosage: 12.5 ONCE A DAY
  4. CYMBALTA [Concomitant]
     Indication: DEPRESSION
     Dosage: 120 MG ONCE A DAY
  5. DIGOXIN [Concomitant]
     Indication: HEART RATE INCREASED
     Dosage: 12.5 MG ONCE A DAY
  6. HYDROCHLOROTHIAZIDE [Concomitant]
     Indication: BLOOD PRESSURE
     Dosage: 25 MG ONCE A DAY
  7. NAPROXEN [Concomitant]
     Indication: PAIN
     Dosage: 1000 MG ONCE A DAY
  8. LAMICTAL [Concomitant]
     Indication: DEPRESSION
     Dosage: 400 MG ONCE A DAY
  9. TRILIPIX [Concomitant]
     Indication: BLOOD CHOLESTEROL
     Dosage: ONCE A DAY

REACTIONS (1)
  - Wrong technique in drug usage process [Recovered/Resolved]
